FAERS Safety Report 5334603-7 (Version None)
Quarter: 2007Q2

REPORT INFORMATION
  Report Type: 
  Country: None (occurrence: None)
  Receive Date: 20070521
  Receipt Date: 20070508
  Transmission Date: 20071010
  Serious: Yes (Hospitalization)
  Sender: FDA-Public Use
  Company Number: 2217-136

PATIENT
  Age: 86 Year
  Sex: Female

DRUGS (10)
  1. TRIAMCINOLONE [Suspect]
     Indication: BACK PAIN
     Dosage: 50 MG ONCE
     Dates: start: 20060101, end: 20060101
  2. DILTIAZEM [Concomitant]
  3. HZTZ/TRIAMTERENE [Concomitant]
  4. FAMOTIDINE [Concomitant]
  5. RALOXIFENE HCL [Concomitant]
  6. CELECOXIB [Concomitant]
  7. VITAMIN CAP [Concomitant]
  8. LOPERAMIDE HCL [Concomitant]
  9. ACETAMINOPHEN [Concomitant]
  10. ANTIHISTAMINES [Concomitant]

REACTIONS (3)
  - BURSA DISORDER [None]
  - SPINAL COMPRESSION FRACTURE [None]
  - SPINAL X-RAY ABNORMAL [None]
